FAERS Safety Report 6187379-8 (Version None)
Quarter: 2009Q2

REPORT INFORMATION
  Report Type: 
  Country: None (occurrence: None)
  Receive Date: 20090512
  Receipt Date: 20090504
  Transmission Date: 20091009
  Serious: Yes (Other)
  Sender: FDA-Public Use
  Company Number: B0566961A

PATIENT
  Sex: Male

DRUGS (10)
  1. AVANDIA [Suspect]
     Indication: DRUG USE FOR UNKNOWN INDICATION
     Dosage: 4MG PER DAY
     Route: 048
     Dates: start: 20080120, end: 20090310
  2. GLIMEPIRIDE [Concomitant]
     Dosage: 6MG PER DAY
     Route: 048
     Dates: start: 20080101
  3. FUROSEMIDE [Concomitant]
     Dosage: 40MG TWICE PER DAY
     Route: 065
  4. FENPROCOUMON [Concomitant]
     Route: 048
     Dates: start: 20090117
  5. PANTOPRAZOL [Concomitant]
     Dosage: 40MG PER DAY
     Route: 048
     Dates: start: 20070101
  6. SOTALOL HYDROCHLORIDE [Concomitant]
     Dosage: 80MG TWICE PER DAY
     Route: 048
     Dates: start: 20070101
  7. LIPITOR [Concomitant]
     Dosage: 20MG PER DAY
     Route: 048
     Dates: start: 19980101
  8. PERINDOPRIL [Concomitant]
     Dosage: 8MG PER DAY
     Route: 048
     Dates: start: 20080401
  9. ZOPICLON [Concomitant]
     Route: 048
  10. INSPRA [Concomitant]
     Dosage: 25MG PER DAY
     Route: 048
     Dates: start: 20090101

REACTIONS (3)
  - CARDIAC FAILURE [None]
  - DYSPNOEA [None]
  - PLEURAL EFFUSION [None]
